FAERS Safety Report 9612442 (Version 2)
Quarter: 2013Q4

REPORT INFORMATION
  Report Type: Spontaneous
  Country: AT (occurrence: AT)
  Receive Date: 20131010
  Receipt Date: 20131107
  Transmission Date: 20140711
  Serious: Yes (Hospitalization)
  Sender: FDA-Public Use
  Company Number: AT-ABBVIE-13P-009-1154132-00

PATIENT
  Age: 61 Year
  Sex: Female

DRUGS (3)
  1. HUMIRA [Suspect]
     Indication: RHEUMATOID ARTHRITIS
     Dates: start: 20130404, end: 20130830
  2. HUMIRA [Suspect]
     Dates: start: 20131022
  3. 14 UNKNOWN CONCOMITANT DRUGS [Concomitant]
     Indication: PRODUCT USED FOR UNKNOWN INDICATION

REACTIONS (2)
  - Carotid artery stenosis [Recovered/Resolved]
  - Anaemia [Recovered/Resolved]
